FAERS Safety Report 8550313-7 (Version None)
Quarter: 2012Q3

REPORT INFORMATION
  Report Type: 
  Country: None (occurrence: None)
  Receive Date: 20120730
  Receipt Date: 20120726
  Transmission Date: 20120928
  Serious: Yes (Hospitalization)
  Sender: FDA-Public Use
  Company Number: PHEH2012US014728

PATIENT
  Sex: Female
  Weight: 95.238 kg

DRUGS (6)
  1. FAMPRIDINE [Concomitant]
     Dosage: 10 MG, BID
  2. DICLOFENAC [Concomitant]
     Dosage: 75 MG, BID
  3. BACLOFEN [Concomitant]
     Dosage: 75 MG, BID
     Route: 048
  4. LYRICA [Concomitant]
     Dosage: 50 MG, BID
  5. MOTRIN [Concomitant]
     Dosage: UNK UKN, UNK
  6. GILENYA [Suspect]
     Indication: MULTIPLE SCLEROSIS
     Dosage: 0.5 MG, QD
     Route: 048
     Dates: start: 20120710, end: 20120724

REACTIONS (4)
  - BALANCE DISORDER [None]
  - FEELING ABNORMAL [None]
  - VISION BLURRED [None]
  - FALL [None]
